FAERS Safety Report 4364878-2 (Version None)
Quarter: 2004Q2

REPORT INFORMATION
  Report Type: 
  Country: None (occurrence: None)
  Receive Date: 20040521
  Receipt Date: 20040506
  Transmission Date: 20050107
  Serious: Yes (Death, Hospitalization)
  Sender: FDA-Public Use
  Company Number: 000863

PATIENT
  Age: 47 Year
  Sex: Female

DRUGS (3)
  1. ZEVALIN [Suspect]
     Indication: NON-HODGKIN'S LYMPHOMA
     Dosage: SINGLE, RITUXAN DOSE 2, INTRAVENOUS; SINGLE, Y-[90] ZEVALIN, INTRAVENOUS
     Route: 042
     Dates: start: 20040301, end: 20040301
  2. ZEVALIN [Suspect]
     Indication: NON-HODGKIN'S LYMPHOMA
     Dosage: SINGLE, RITUXAN DOSE 2, INTRAVENOUS; SINGLE, Y-[90] ZEVALIN, INTRAVENOUS
     Route: 042
     Dates: start: 20040311, end: 20040311
  3. ZEVALIN [Suspect]
     Indication: NON-HODGKIN'S LYMPHOMA
     Dosage: SINGLE, RITUXAN DOSE 2, INTRAVENOUS; SINGLE, Y-[90] ZEVALIN, INTRAVENOUS
     Route: 042
     Dates: start: 20040311, end: 20040311

REACTIONS (5)
  - DISEASE PROGRESSION [None]
  - LEUKOPENIA [None]
  - MULTI-ORGAN FAILURE [None]
  - SEPSIS [None]
  - THROMBOCYTOPENIA [None]
